FAERS Safety Report 8378863-7 (Version None)
Quarter: 2012Q2

REPORT INFORMATION
  Report Type: 
  Country: None (occurrence: None)
  Receive Date: 20120523
  Receipt Date: 20120514
  Transmission Date: 20120825
  Serious: Yes (Hospitalization)
  Sender: FDA-Public Use
  Company Number: US-PAR PHARMACEUTICAL, INC-2012SCPR004308

PATIENT

DRUGS (8)
  1. QUETIAPINE FUMARATE [Concomitant]
     Indication: BIPOLAR DISORDER
     Dosage: 200 MG, QD
     Route: 048
     Dates: start: 20070101
  2. LUBIPROSTONE [Suspect]
     Dosage: UNK, UNKNOWN
     Route: 065
     Dates: start: 20120419
  3. LISINOPRIL [Concomitant]
     Indication: HYPERTENSION
     Dosage: 40 MG, TWICE DAILY
     Route: 048
     Dates: start: 20100101
  4. MIRTAZAPINE [Concomitant]
     Indication: BIPOLAR DISORDER
     Dosage: 30 MG, QD
     Route: 048
     Dates: start: 20090101
  5. LUBIPROSTONE [Suspect]
     Indication: CONSTIPATION
     Dosage: 1 CAPSULE, TWICE A DAY; ONCE IN THE MORNING AND ONCE IN THE EVENING
     Route: 048
     Dates: start: 20120329, end: 20120402
  6. SEROQUEL [Concomitant]
     Indication: PRODUCT USED FOR UNKNOWN INDICATION
     Dosage: 200 MG, BEDTIME
     Route: 048
  7. NICOTINE [Concomitant]
     Indication: SMOKING CESSATION THERAPY
     Dosage: 21 MG, QD
     Route: 062
     Dates: start: 20120303
  8. REMERON [Concomitant]
     Indication: PRODUCT USED FOR UNKNOWN INDICATION
     Dosage: 15 MG A DAY
     Route: 065

REACTIONS (9)
  - FALL [None]
  - BLOOD PRESSURE INCREASED [None]
  - ALCOHOL POISONING [None]
  - MASTOID EFFUSION [None]
  - HAEMATEMESIS [None]
  - DELIRIUM TREMENS [None]
  - GASTROINTESTINAL HAEMORRHAGE [None]
  - SINUS TACHYCARDIA [None]
  - GASTROOESOPHAGEAL REFLUX DISEASE [None]
